FAERS Safety Report 9510269 (Version 1)
Quarter: 2013Q3

REPORT INFORMATION
  Report Type: Spontaneous
  Country: US (occurrence: US)
  Receive Date: 20130909
  Receipt Date: 20130909
  Transmission Date: 20140515
  Serious: No
  Sender: FDA-Public Use
  Company Number: US-BRISTOL-MYERS SQUIBB COMPANY-17480781

PATIENT
  Age: 30 Year
  Sex: 0

DRUGS (3)
  1. ABILIFY [Suspect]
     Indication: SCHIZOPHRENIA
  2. RISPERDAL [Suspect]
     Indication: SCHIZOPHRENIA
  3. ZYPREXA [Suspect]
     Indication: SCHIZOPHRENIA

REACTIONS (1)
  - Drug ineffective [Unknown]
